FAERS Safety Report 7487342-0 (Version None)
Quarter: 2011Q2

REPORT INFORMATION
  Report Type: 
  Country: None (occurrence: None)
  Receive Date: 20110518
  Receipt Date: 20110510
  Transmission Date: 20111010
  Serious: Yes (Other)
  Sender: FDA-Public Use
  Company Number: JP-ASTELLAS-2011JP003134

PATIENT
  Age: 65 Year
  Sex: Male

DRUGS (3)
  1. METHOTREXATE [Concomitant]
     Indication: PROPHYLAXIS AGAINST GRAFT VERSUS HOST DISEASE
     Route: 065
  2. PROGRAF [Suspect]
     Indication: PROPHYLAXIS AGAINST GRAFT VERSUS HOST DISEASE
     Route: 065
  3. PREDNISOLONE [Concomitant]
     Indication: GRAFT VERSUS HOST DISEASE
     Dosage: 2 MG/KG, UNKNOWN/D
     Route: 048

REACTIONS (3)
  - DRUG INEFFECTIVE [None]
  - GRAFT VERSUS HOST DISEASE [None]
  - ORAL HERPES [None]
